FAERS Safety Report 24131690 (Version 1)
Quarter: 2024Q3

REPORT INFORMATION
  Report Type: Report from Study
  Country: MX (occurrence: None)
  Receive Date: 20240724
  Receipt Date: 20240724
  Transmission Date: 20241017
  Serious: Yes (Other)
  Sender: ASTRAZENECA
  Company Number: 2019SF53307

PATIENT
  Age: 781 Month
  Sex: Male
  Weight: 80 kg

DRUGS (6)
  1. XIGDUO XR [Suspect]
     Active Substance: DAPAGLIFLOZIN PROPANEDIOL\METFORMIN HYDROCHLORIDE
     Indication: Diabetes mellitus
     Dosage: 10 MG/ 1000 MG, DAILY
     Route: 048
     Dates: start: 20190717
  2. XIGDUO XR [Suspect]
     Active Substance: DAPAGLIFLOZIN PROPANEDIOL\METFORMIN HYDROCHLORIDE
     Indication: Type 2 diabetes mellitus
     Dosage: 10 MG/ 1000 MG, DAILY
     Route: 048
     Dates: start: 20190717
  3. ENALAPRIL [Suspect]
     Active Substance: ENALAPRIL
     Indication: Essential hypertension
     Dosage: 10 MG IN THE MORNING AND 10 MG AT NIGHT
     Route: 065
     Dates: start: 2006, end: 201908
  4. ASPIRIN [Concomitant]
     Active Substance: ASPIRIN
     Dosage: I TABLET
     Route: 048
     Dates: start: 201910
  5. CALCIUM PANTOTHENATE\CYANOCOBALAMIN\NIACINAMIDE\PYRIDOXINE HYDROCHLORI [Concomitant]
     Active Substance: CALCIUM PANTOTHENATE\CYANOCOBALAMIN\NIACINAMIDE\PYRIDOXINE HYDROCHLORIDE\RIBOFLAVIN\THIAMINE MONONIT
     Indication: Diabetes mellitus
     Dates: start: 2019
  6. OMEGA 3 [Concomitant]
     Active Substance: CAPSAICIN
     Indication: Malnutrition
     Dates: start: 2019

REACTIONS (10)
  - Thrombosis [Unknown]
  - Blood pressure diastolic increased [Unknown]
  - Hypotension [Recovered/Resolved]
  - Weight decreased [Not Recovered/Not Resolved]
  - Constipation [Recovered/Resolved]
  - Pollakiuria [Not Recovered/Not Resolved]
  - Dry mouth [Unknown]
  - Dehydration [Unknown]
  - Platelet count decreased [Recovered/Resolved]
  - Feeling abnormal [Unknown]

NARRATIVE: CASE EVENT DATE: 20190601
